FAERS Safety Report 8576808-8 (Version None)
Quarter: 2012Q3

REPORT INFORMATION
  Report Type: 
  Country: None (occurrence: None)
  Receive Date: 20120807
  Receipt Date: 20120803
  Transmission Date: 20120928
  Serious: Yes (Hospitalization, Other)
  Sender: FDA-Public Use
  Company Number: AR-AMGEN-US270240

PATIENT
  Age: 60 Year
  Sex: Male

DRUGS (13)
  1. ATENOLOL [Concomitant]
     Dosage: 25 MG, BID
     Dates: start: 20060201
  2. CALCIUM CARBONATE [Concomitant]
     Dosage: 1250 MG, BID
     Dates: start: 20071018
  3. OMEPRAZOLE [Concomitant]
     Dosage: 20 MG, QD
     Dates: start: 20070418
  4. MIDAZOLAM [Concomitant]
     Dosage: 7.5 MG, QD
     Dates: start: 20060201
  5. PARICALCITOL [Concomitant]
     Dosage: 5 A?G, UNK
     Dates: start: 20080204
  6. ERYTHROPOIETIN HUMAN [Concomitant]
     Dosage: 6000 IU, QWK
     Dates: start: 20080301
  7. CINACALCET HYDROCHLORIDE [Suspect]
     Indication: HYPERPARATHYROIDISM SECONDARY
     Dosage: UNK BLINDED, QD
     Route: 048
     Dates: start: 20070423
  8. SEVELAMER HCL [Concomitant]
     Dosage: 800 MG, UNK
     Dates: start: 20060621
  9. CLONAZEPAM [Concomitant]
     Dosage: .5 MG, QD
     Dates: start: 20060201
  10. DILTIAZEM HCL [Concomitant]
     Dosage: 60 MG, BID
     Dates: start: 20060201
  11. ISOSORBIDE MONONITRATE [Concomitant]
     Dosage: 20 MG, 2 TIMES/WK
  12. IBUPROFEN [Concomitant]
     Dosage: 400 MG, QD
  13. FERROUS FUMARATE [Concomitant]
     Dosage: UNK UNK, Q2WK
     Route: 042

REACTIONS (1)
  - GASTRITIS EROSIVE [None]
